FAERS Safety Report 6712798-8 (Version None)
Quarter: 2010Q2

REPORT INFORMATION
  Report Type: 
  Country: None (occurrence: None)
  Receive Date: 20100506
  Receipt Date: 20090505
  Transmission Date: 20101027
  Serious: No
  Sender: FDA-Public Use
  Company Number: A0784188A

PATIENT
  Age: 24 Year
  Sex: Female

DRUGS (3)
  1. AUGMENTIN '125' [Suspect]
     Route: 065
     Dates: end: 20090316
  2. PLAN B [Suspect]
     Indication: CONTRACEPTION
     Dosage: .75MG TWICE PER DAY
     Route: 048
     Dates: start: 20090316, end: 20090317
  3. YAZ [Concomitant]
     Dates: start: 20020101

REACTIONS (1)
  - NAUSEA [None]
